FAERS Safety Report 21216894 (Version 1)
Quarter: 2022Q3

REPORT INFORMATION
  Report Type: Spontaneous
  Country: US (occurrence: None)
  Receive Date: 20220816
  Receipt Date: 20220816
  Transmission Date: 20221026
  Serious: No
  Sender: FDA-Public Use
  Company Number: US-ROCHE-2970783

PATIENT
  Age: 61 Year
  Sex: Male
  Weight: 97.610 kg

DRUGS (5)
  1. ALECENSA [Suspect]
     Active Substance: ALECTINIB HYDROCHLORIDE
     Indication: Non-small cell lung cancer
     Route: 048
     Dates: start: 20211101
  2. TAMSULOSIN [Concomitant]
     Active Substance: TAMSULOSIN
     Indication: Genitourinary symptom
     Route: 065
  3. OXYBUTYNIN [Concomitant]
     Active Substance: OXYBUTYNIN
     Indication: Genitourinary symptom
     Route: 065
  4. FINASTERIDE [Concomitant]
     Active Substance: FINASTERIDE
     Indication: Genitourinary symptom
     Route: 065
  5. ROSUVASTATIN [Concomitant]
     Active Substance: ROSUVASTATIN
     Indication: Blood cholesterol
     Route: 065

REACTIONS (3)
  - Epistaxis [Unknown]
  - Pollakiuria [Unknown]
  - Arthritis [Unknown]

NARRATIVE: CASE EVENT DATE: 20211101
